FAERS Safety Report 9040922 (Version 1)
Quarter: 2013Q1

REPORT INFORMATION
  Report Type: Spontaneous
  Country: US (occurrence: US)
  Receive Date: 20130129
  Receipt Date: 20130129
  Transmission Date: 20140127
  Serious: No
  Sender: FDA-Public Use
  Company Number: US-ABBOTT-12P-163-0903203-00

PATIENT
  Sex: Female
  Weight: 81.72 kg

DRUGS (4)
  1. HUMIRA 40 MG/0.8 ML PEN [Suspect]
     Indication: ANKYLOSING SPONDYLITIS
     Dosage: ONE DOSE
     Dates: start: 201201, end: 201201
  2. METHOTREXATE [Concomitant]
     Indication: ANKYLOSING SPONDYLITIS
  3. INDOMETHACIN [Concomitant]
     Indication: ANKYLOSING SPONDYLITIS
  4. PREDNISONE [Concomitant]
     Indication: ANKYLOSING SPONDYLITIS

REACTIONS (3)
  - Injection site pain [Recovered/Resolved]
  - Respiratory tract infection [Recovering/Resolving]
  - Cough [Recovering/Resolving]
